FAERS Safety Report 13476471 (Version 3)
Quarter: 2017Q3

REPORT INFORMATION
  Report Type: Report from Study
  Country: US (occurrence: US)
  Receive Date: 20170424
  Receipt Date: 20170810
  Transmission Date: 20171127
  Serious: Yes (Hospitalization, Other)
  Sender: FDA-Public Use
  Company Number: US-GILEAD-2016-0251339

PATIENT
  Age: 50 Year
  Sex: Male

DRUGS (2)
  1. IDELALISIB [Suspect]
     Active Substance: IDELALISIB
     Indication: NON-HODGKIN^S LYMPHOMA
     Dosage: 150 MG, BID
     Route: 048
     Dates: start: 20161013, end: 20170418
  2. IDELALISIB [Suspect]
     Active Substance: IDELALISIB
     Indication: B-CELL LYMPHOMA
     Dosage: 150 MG, BID
     Route: 048
     Dates: start: 20170601

REACTIONS (14)
  - Ankle fracture [Unknown]
  - Ankle fracture [Unknown]
  - Mobility decreased [Unknown]
  - Weight decreased [Unknown]
  - Road traffic accident [Recovered/Resolved]
  - Pain [Unknown]
  - Pain [Not Recovered/Not Resolved]
  - Pneumonitis [Not Recovered/Not Resolved]
  - Dyspnoea [Not Recovered/Not Resolved]
  - Malaise [Not Recovered/Not Resolved]
  - Gait disturbance [Not Recovered/Not Resolved]
  - Impaired healing [Unknown]
  - Cast application [Unknown]
  - Skin abrasion [Unknown]

NARRATIVE: CASE EVENT DATE: 20161223
